FAERS Safety Report 18369323 (Version 2)
Quarter: 2020Q4

REPORT INFORMATION
  Report Type: Spontaneous
  Country: US (occurrence: US)
  Receive Date: 20201012
  Receipt Date: 20201016
  Transmission Date: 20210114
  Serious: Yes (Life-Threatening, Hospitalization, Other)
  Sender: FDA-Public Use
  Company Number: US-ACCORD-204578

PATIENT
  Age: 64 Year
  Sex: Male

DRUGS (4)
  1. FENTANYL. [Interacting]
     Active Substance: FENTANYL
     Indication: PAIN
     Dosage: AS NEEDED
     Route: 042
  2. DEXMEDETOMIDINE/DEXMEDETOMIDINE HYDROCHLORIDE [Interacting]
     Active Substance: DEXMEDETOMIDINE HYDROCHLORIDE
     Indication: PAIN
     Route: 042
  3. METHYLTHIONINIUM [Interacting]
     Active Substance: METHYLENE BLUE
     Indication: VASOPLEGIA SYNDROME
     Route: 042
  4. SERTRALINE [Suspect]
     Active Substance: SERTRALINE HYDROCHLORIDE
     Indication: DEPRESSION
     Route: 048

REACTIONS (3)
  - Serotonin syndrome [Recovered/Resolved]
  - Off label use [Unknown]
  - Drug interaction [Unknown]
